FAERS Safety Report 6395805-4 (Version None)
Quarter: 2009Q4

REPORT INFORMATION
  Report Type: 
  Country: None (occurrence: None)
  Receive Date: 20091009
  Receipt Date: 20090714
  Transmission Date: 20100525
  Serious: No
  Sender: FDA-Public Use
  Company Number: A0787484A

PATIENT
  Age: 46 Year
  Sex: Female
  Weight: 83.2 kg

DRUGS (6)
  1. TYKERB [Suspect]
     Route: 065
     Dates: start: 20090509
  2. ZITHROMAX [Concomitant]
     Route: 048
  3. TAMOXIFEN CITRATE [Concomitant]
  4. FLUCONAZOLE [Concomitant]
     Route: 048
  5. HERCEPTIN [Concomitant]
  6. FEMARA [Concomitant]

REACTIONS (3)
  - PARAESTHESIA ORAL [None]
  - RASH [None]
  - SKIN LACERATION [None]
